FAERS Safety Report 8810774 (Version 1)
Quarter: 2012Q4

REPORT INFORMATION
  Report Type: Spontaneous
  Country: US (occurrence: None)
  Receive Date: 20120924
  Receipt Date: 20120924
  Transmission Date: 20130627
  Serious: Yes (Hospitalization)
  Sender: FDA-Public Use
  Company Number: None

PATIENT
  Age: 32 Year
  Sex: Female
  Weight: 86.4 kg

DRUGS (1)
  1. OFIRMEV [Suspect]
     Indication: POSTOPERATIVE PAIN
     Route: 042
     Dates: start: 20120913

REACTIONS (4)
  - Chest pain [None]
  - Sensation of pressure [None]
  - Chest discomfort [None]
  - Drug ineffective [None]
